FAERS Safety Report 4719970-7 (Version None)
Quarter: 2005Q3

REPORT INFORMATION
  Report Type: 
  Country: None (occurrence: None)
  Receive Date: 20050721
  Receipt Date: 20050708
  Transmission Date: 20060218
  Serious: Yes (Hospitalization)
  Sender: FDA-Public Use
  Company Number: 2005AP03791

PATIENT
  Age: 84 Year
  Sex: Female

DRUGS (10)
  1. SEROQUEL [Suspect]
     Indication: DEMENTIA ALZHEIMER'S TYPE
     Route: 048
     Dates: start: 20050317, end: 20050330
  2. SEROQUEL [Suspect]
     Route: 048
     Dates: start: 20050331, end: 20050427
  3. SEROQUEL [Suspect]
     Route: 048
     Dates: start: 20050428, end: 20050609
  4. ROCALTROL [Concomitant]
     Route: 048
  5. CARDENALIN [Concomitant]
     Route: 048
  6. NICARDIPINE HCL [Concomitant]
     Route: 048
  7. ARICEPT [Concomitant]
     Route: 048
  8. GASTER [Concomitant]
     Route: 048
  9. TILCOTIL [Concomitant]
     Route: 048
  10. ASPIRIN [Concomitant]
     Route: 048

REACTIONS (2)
  - CEREBRAL INFARCTION [None]
  - HEMIPLEGIA [None]
